FAERS Safety Report 4290740-X (Version None)
Quarter: 2004Q1

REPORT INFORMATION
  Report Type: 
  Country: None (occurrence: None)
  Receive Date: 20040209
  Receipt Date: 20040209
  Transmission Date: 20041129
  Serious: Yes (Hospitalization)
  Sender: FDA-Public Use
  Company Number: None

PATIENT
  Age: 67 Year
  Sex: Male
  Weight: 96.7 kg

DRUGS (10)
  1. PROPOFOL [Suspect]
     Indication: INDUCTION OF ANAESTHESIA
     Dosage: 150 MG IV X ONE
     Route: 042
     Dates: start: 20040130
  2. SEVAFLURANE [Concomitant]
  3. MIDAZOLAM HCL [Concomitant]
  4. FENTANYL [Concomitant]
  5. BETAPACE [Concomitant]
  6. AMARYL [Concomitant]
  7. LANTUS [Concomitant]
  8. CARDIZEM CD [Concomitant]
  9. ATIVAN [Concomitant]
  10. NOVOLOG [Concomitant]

REACTIONS (4)
  - ATRIAL FIBRILLATION [None]
  - CHEST PAIN [None]
  - DYSPNOEA [None]
  - HEPATITIS [None]
